FAERS Safety Report 16670266 (Version 4)
Quarter: 2021Q1

REPORT INFORMATION
  Report Type: Report from Study
  Country: PL (occurrence: PL)
  Receive Date: 20190805
  Receipt Date: 20210210
  Transmission Date: 20210419
  Serious: Yes (Hospitalization)
  Sender: FDA-Public Use
  Company Number: PL-SHIRE-PL201924802

PATIENT

DRUGS (78)
  1. IDURSULFASE [Suspect]
     Active Substance: IDURSULFASE
     Dosage: 0.5 MILLIGRAM/KILOGRAM, 1X/WEEK
     Route: 065
     Dates: start: 20070816
  2. ACETAMINOPHEN. [Concomitant]
     Active Substance: ACETAMINOPHEN
     Dosage: UNK
     Route: 065
     Dates: start: 20090505, end: 20090505
  3. ACETAMINOPHEN. [Concomitant]
     Active Substance: ACETAMINOPHEN
     Dosage: UNK
     Route: 065
     Dates: start: 20100605, end: 20100605
  4. ACETAMINOPHEN. [Concomitant]
     Active Substance: ACETAMINOPHEN
     Dosage: UNK
     Route: 065
     Dates: start: 20100427, end: 20100427
  5. ACETAMINOPHEN. [Concomitant]
     Active Substance: ACETAMINOPHEN
     Dosage: UNK
     Route: 065
     Dates: start: 20100420
  6. ACETAMINOPHEN. [Concomitant]
     Active Substance: ACETAMINOPHEN
     Dosage: UNK
     Route: 065
     Dates: start: 20100304, end: 20100304
  7. IBUFEN [Concomitant]
     Indication: PREMEDICATION
     Dosage: UNK
     Route: 065
     Dates: start: 20110504, end: 20110504
  8. RUTINOSCORBIN [Concomitant]
     Active Substance: ASCORBIC ACID\RUTIN
     Indication: EPISTAXIS
     Dosage: UNK
     Route: 048
     Dates: start: 20091022, end: 200911
  9. VITRUM CALCIUM [Concomitant]
     Indication: VITAMIN D DEFICIENCY
     Dosage: UNK
     Route: 065
     Dates: start: 20120117
  10. NYSTATINUM [Concomitant]
     Active Substance: NYSTATIN
     Indication: ORAL CANDIDIASIS
     Dosage: UNK
     Route: 048
     Dates: start: 20080207, end: 20080211
  11. RANIGAST [Concomitant]
     Indication: GASTROINTESTINAL DISORDER
     Dosage: UNK
     Route: 065
     Dates: start: 20120612, end: 201206
  12. DALACIN C [CLINDAMYCIN HYDROCHLORIDE] [Concomitant]
     Active Substance: CLINDAMYCIN HYDROCHLORIDE
     Indication: INFECTION
     Dosage: UNK
     Route: 065
     Dates: start: 20110329, end: 201104
  13. BACTRIM [Concomitant]
     Active Substance: SULFAMETHOXAZOLE\TRIMETHOPRIM
     Indication: STOMATITIS
     Dosage: UNK
     Route: 065
     Dates: start: 20080830, end: 200809
  14. ACETAMINOPHEN. [Concomitant]
     Active Substance: ACETAMINOPHEN
     Dosage: UNK
     Route: 065
     Dates: start: 20120117, end: 20120117
  15. ACETAMINOPHEN. [Concomitant]
     Active Substance: ACETAMINOPHEN
     Dosage: UNK
     Route: 065
     Dates: start: 20090820, end: 20090820
  16. ACETAMINOPHEN. [Concomitant]
     Active Substance: ACETAMINOPHEN
     Dosage: UNK
     Route: 065
     Dates: start: 20090917, end: 20090917
  17. ACETAMINOPHEN. [Concomitant]
     Active Substance: ACETAMINOPHEN
     Dosage: UNK
     Route: 065
     Dates: start: 20070827, end: 20080916
  18. OSPAMOX [Concomitant]
     Active Substance: AMOXICILLIN
     Indication: UPPER RESPIRATORY TRACT INFECTION
     Dosage: UNK
     Route: 065
     Dates: start: 20071204, end: 200712
  19. ZYRTEC [Concomitant]
     Active Substance: CETIRIZINE HYDROCHLORIDE
     Indication: PREMEDICATION
     Dosage: UNK
     Route: 065
     Dates: start: 20130211
  20. ALDARA [Concomitant]
     Active Substance: IMIQUIMOD
     Indication: SKIN PAPILLOMA
     Dosage: UNK
     Route: 062
     Dates: start: 20080701, end: 20080722
  21. VITAMIN C [Concomitant]
     Active Substance: ASCORBIC ACID
     Indication: JOINT SWELLING
     Dosage: UNK
     Route: 065
     Dates: start: 20120612, end: 20120619
  22. IDURSULFASE [Suspect]
     Active Substance: IDURSULFASE
     Dosage: 0.5 MILLIGRAM/KILOGRAM, 1X/WEEK
     Route: 065
     Dates: start: 20070807
  23. IDURSULFASE [Suspect]
     Active Substance: IDURSULFASE
     Dosage: 0.5 MILLIGRAM/KILOGRAM, 1X/WEEK
     Route: 065
     Dates: start: 20070827
  24. ACETAMINOPHEN. [Concomitant]
     Active Substance: ACETAMINOPHEN
     Dosage: UNK
     Route: 065
     Dates: start: 20080925, end: 20081021
  25. ACETAMINOPHEN. [Concomitant]
     Active Substance: ACETAMINOPHEN
     Dosage: UNK
     Route: 065
     Dates: start: 20090730, end: 20090730
  26. ACETAMINOPHEN. [Concomitant]
     Active Substance: ACETAMINOPHEN
     Dosage: UNK
     Route: 065
     Dates: start: 20091126, end: 20091126
  27. ACETAMINOPHEN. [Concomitant]
     Active Substance: ACETAMINOPHEN
     Dosage: UNK
     Route: 065
     Dates: start: 20090827, end: 20090827
  28. ACETAMINOPHEN. [Concomitant]
     Active Substance: ACETAMINOPHEN
     Dosage: UNK
     Route: 065
     Dates: start: 20090807, end: 20090807
  29. ACETAMINOPHEN. [Concomitant]
     Active Substance: ACETAMINOPHEN
     Dosage: UNK
     Route: 065
     Dates: start: 20091203, end: 20091203
  30. IBUFEN [Concomitant]
     Indication: PAIN
     Dosage: UNK
     Route: 065
     Dates: start: 20120612, end: 20120619
  31. IBUFEN [Concomitant]
     Dosage: UNK
     Route: 048
     Dates: start: 20090528, end: 200906
  32. HYDROCORTISONE. [Concomitant]
     Active Substance: HYDROCORTISONE
     Indication: PREMEDICATION
     Dosage: UNK
     Route: 065
     Dates: start: 20120515, end: 20120515
  33. IDURSULFASE [Suspect]
     Active Substance: IDURSULFASE
     Dosage: 0.42 MILLIGRAM/KILOGRAM, ALTERNATED WITH 0.63 MG/KG
     Route: 065
     Dates: start: 20120508
  34. ACETAMINOPHEN. [Concomitant]
     Active Substance: ACETAMINOPHEN
     Dosage: UNK
     Route: 065
     Dates: start: 20100123, end: 20100123
  35. ACETAMINOPHEN. [Concomitant]
     Active Substance: ACETAMINOPHEN
     Dosage: UNK
     Route: 065
     Dates: start: 20090924, end: 20090924
  36. ACETAMINOPHEN. [Concomitant]
     Active Substance: ACETAMINOPHEN
     Dosage: UNK
     Route: 065
     Dates: start: 20100608, end: 20100608
  37. ACETAMINOPHEN. [Concomitant]
     Active Substance: ACETAMINOPHEN
     Dosage: UNK
     Route: 065
     Dates: start: 20090512, end: 20090512
  38. ACETAMINOPHEN. [Concomitant]
     Active Substance: ACETAMINOPHEN
     Dosage: UNK
     Route: 065
     Dates: start: 20100225, end: 20100225
  39. ACETAMINOPHEN. [Concomitant]
     Active Substance: ACETAMINOPHEN
     Dosage: UNK
     Route: 065
     Dates: start: 20100121, end: 20100121
  40. DOPAMINE [Concomitant]
     Active Substance: DOPAMINE HYDROCHLORIDE
     Indication: CARDIOMYOPATHY
     Dosage: UNK
     Route: 065
     Dates: start: 20070426, end: 20070426
  41. CALCIUM DOBESILATE [Concomitant]
     Active Substance: CALCIUM DOBESILATE
     Indication: EPISTAXIS
     Dosage: UNK
     Route: 065
     Dates: start: 20091022, end: 200911
  42. ACETAMINOPHEN. [Concomitant]
     Active Substance: ACETAMINOPHEN
     Dosage: UNK
     Route: 065
     Dates: start: 20101116, end: 20101116
  43. ACETAMINOPHEN. [Concomitant]
     Active Substance: ACETAMINOPHEN
     Dosage: UNK
     Route: 065
     Dates: start: 20101130, end: 20101130
  44. ACETAMINOPHEN. [Concomitant]
     Active Substance: ACETAMINOPHEN
     Dosage: UNK
     Route: 065
     Dates: start: 20100318, end: 20100318
  45. OXYGEN. [Concomitant]
     Active Substance: OXYGEN
     Indication: TACHYPNOEA
     Dosage: UNK
     Route: 065
     Dates: start: 20070502, end: 20070504
  46. HYDROCORTISONE. [Concomitant]
     Active Substance: HYDROCORTISONE
     Dosage: UNK
     Route: 065
     Dates: start: 20130205
  47. RUTINOSCORBIN [Concomitant]
     Active Substance: ASCORBIC ACID\RUTIN
     Indication: EPISTAXIS
     Dosage: UNK
     Route: 065
     Dates: start: 20111220
  48. CEFUROXIM [CEFUROXIME] [Concomitant]
     Active Substance: CEFUROXIME
     Indication: INFECTION
     Dosage: UNK
     Route: 048
     Dates: start: 20090218
  49. ACETAMINOPHEN. [Concomitant]
     Active Substance: ACETAMINOPHEN
     Dosage: UNK
     Route: 065
     Dates: start: 20091015, end: 20091015
  50. ACETAMINOPHEN. [Concomitant]
     Active Substance: ACETAMINOPHEN
     Dosage: UNK
     Route: 065
     Dates: start: 20090813, end: 20090813
  51. ACETAMINOPHEN. [Concomitant]
     Active Substance: ACETAMINOPHEN
     Dosage: UNK
     Route: 065
     Dates: start: 20091002
  52. ACETAMINOPHEN. [Concomitant]
     Active Substance: ACETAMINOPHEN
     Dosage: UNK
     Route: 065
     Dates: start: 20090120, end: 20090120
  53. EFRINOL [Concomitant]
     Indication: RESPIRATORY DISORDER
     Dosage: UNK
     Route: 065
     Dates: start: 20101130, end: 201012
  54. EMOFIX [Concomitant]
     Indication: EPISTAXIS
     Dosage: UNK
     Route: 062
     Dates: start: 20111220
  55. TUSSIPINI [Concomitant]
     Indication: UPPER RESPIRATORY TRACT INFECTION
     Dosage: UNK
     Route: 065
     Dates: start: 20090528, end: 200906
  56. ZINNAT [CEFUROXIME AXETIL] [Concomitant]
     Active Substance: CEFUROXIME
     Dosage: UNK
     Route: 065
     Dates: start: 20080711, end: 200807
  57. ACETAMINOPHEN. [Concomitant]
     Active Substance: ACETAMINOPHEN
     Dosage: UNK
     Route: 065
     Dates: start: 20090910, end: 20090910
  58. ACETAMINOPHEN. [Concomitant]
     Active Substance: ACETAMINOPHEN
     Dosage: UNK
     Route: 065
     Dates: start: 20100324, end: 20100324
  59. ACETAMINOPHEN. [Concomitant]
     Active Substance: ACETAMINOPHEN
     Dosage: UNK
     Route: 065
     Dates: start: 20100810, end: 20100810
  60. ACETAMINOPHEN. [Concomitant]
     Active Substance: ACETAMINOPHEN
     Dosage: UNK
     Route: 065
     Dates: start: 20091105, end: 20091105
  61. CLOTRIMAZOLUM [Concomitant]
     Indication: SKIN PAPILLOMA
     Dosage: UNK
     Route: 062
     Dates: start: 20080624, end: 20080701
  62. ETAMSYLATUM [Concomitant]
     Indication: PERIPHERAL VASCULAR DISORDER
     Dosage: UNK
     Route: 065
     Dates: start: 200704, end: 200704
  63. BIOFUROKSYM [Concomitant]
     Active Substance: CEFUROXIME SODIUM
     Indication: INFECTION
     Dosage: UNK
     Route: 065
     Dates: start: 20070426
  64. ALLERTEC [Concomitant]
     Active Substance: CETIRIZINE HYDROCHLORIDE
     Indication: UPPER RESPIRATORY TRACT INFECTION
     Dosage: UNK
     Route: 065
     Dates: start: 20090528, end: 200906
  65. IDURSULFASE [Suspect]
     Active Substance: IDURSULFASE
     Indication: MUCOPOLYSACCHARIDOSIS II
     Dosage: 0.5 MILLIGRAM/KILOGRAM, 1X/WEEK
     Route: 065
     Dates: start: 20070723
  66. ZINNAT [CEFUROXIME AXETIL] [Concomitant]
     Active Substance: CEFUROXIME
     Indication: UPPER RESPIRATORY TRACT INFECTION
     Dosage: UNK
     Route: 065
     Dates: start: 20090218, end: 20090223
  67. ZINNAT [CEFUROXIME AXETIL] [Concomitant]
     Active Substance: CEFUROXIME
     Indication: PHARYNGEAL ERYTHEMA
     Dosage: UNK
     Route: 065
     Dates: start: 20081007, end: 20081014
  68. ACETAMINOPHEN. [Concomitant]
     Active Substance: ACETAMINOPHEN
     Indication: PREMEDICATION
     Dosage: UNK
     Route: 065
     Dates: start: 20081202, end: 20090113
  69. ACETAMINOPHEN. [Concomitant]
     Active Substance: ACETAMINOPHEN
     Dosage: UNK
     Route: 065
     Dates: start: 20091008, end: 20091008
  70. ACETAMINOPHEN. [Concomitant]
     Active Substance: ACETAMINOPHEN
     Dosage: UNK
     Route: 065
     Dates: start: 20101207, end: 20101207
  71. ACETAMINOPHEN. [Concomitant]
     Active Substance: ACETAMINOPHEN
     Dosage: UNK
     Route: 065
     Dates: start: 20091217, end: 20091217
  72. ACETAMINOPHEN. [Concomitant]
     Active Substance: ACETAMINOPHEN
     Dosage: UNK
     Route: 065
     Dates: start: 20091210, end: 20091210
  73. ACETAMINOPHEN. [Concomitant]
     Active Substance: ACETAMINOPHEN
     Dosage: UNK
     Route: 065
     Dates: start: 20090903, end: 20090903
  74. ACETAMINOPHEN. [Concomitant]
     Active Substance: ACETAMINOPHEN
     Dosage: UNK
     Route: 065
     Dates: start: 20100407, end: 20100407
  75. ACETAMINOPHEN. [Concomitant]
     Active Substance: ACETAMINOPHEN
     Dosage: UNK
     Route: 065
     Dates: start: 20100331, end: 20100331
  76. ZYRTEC [Concomitant]
     Active Substance: CETIRIZINE HYDROCHLORIDE
     Dosage: UNK
     Route: 065
     Dates: start: 20120618, end: 20120618
  77. AUGMENTINE [AMOXICILLIN;CLAVULANIC ACID] [Concomitant]
     Active Substance: AMOXICILLIN\CLAVULANIC ACID
     Indication: UPPER RESPIRATORY TRACT INFECTION
     Dosage: UNK
     Route: 065
     Dates: start: 200912, end: 201001
  78. CEBIONMULTI [Concomitant]
     Indication: HYPOVITAMINOSIS
     Dosage: UNK
     Route: 065
     Dates: start: 20070807, end: 200708

REACTIONS (2)
  - Drug hypersensitivity [Recovered/Resolved]
  - Joint swelling [Recovered/Resolved]

NARRATIVE: CASE EVENT DATE: 20120515
